FAERS Safety Report 14799233 (Version 1)
Quarter: 2018Q2

REPORT INFORMATION
  Report Type: Spontaneous
  Country: US (occurrence: US)
  Receive Date: 20180416
  Receipt Date: 20180416
  Transmission Date: 20180711
  Serious: Yes (Hospitalization, Disabling, Other)
  Sender: FDA-Public Use
  Company Number: None

PATIENT
  Age: 29 Year
  Sex: Female
  Weight: 64.41 kg

DRUGS (1)
  1. MIRENA [Suspect]
     Active Substance: LEVONORGESTREL
     Dates: start: 20130531

REACTIONS (10)
  - Dysuria [None]
  - Depression [None]
  - Mood swings [None]
  - Vaginal haemorrhage [None]
  - Pelvic pain [None]
  - Dyspareunia [None]
  - Vaginal infection [None]
  - Urinary tract infection [None]
  - Alopecia [None]
  - Back pain [None]

NARRATIVE: CASE EVENT DATE: 20130615
